FAERS Safety Report 21782195 (Version 1)
Quarter: 2022Q4

REPORT INFORMATION
  Report Type: Spontaneous
  Country: GB (occurrence: GB)
  Receive Date: 20221227
  Receipt Date: 20221227
  Transmission Date: 20230113
  Serious: Yes (Other)
  Sender: FDA-Public Use
  Company Number: None

PATIENT
  Age: 89 Year
  Sex: Female
  Weight: 72 kg

DRUGS (8)
  1. EZETIMIBE [Suspect]
     Active Substance: EZETIMIBE
     Indication: Product used for unknown indication
     Dates: start: 20220531
  2. ASPIRIN [Concomitant]
     Active Substance: ASPIRIN
     Dates: start: 20201117
  3. FEXOFENADINE [Concomitant]
     Active Substance: FEXOFENADINE HYDROCHLORIDE
     Dates: start: 20220308, end: 20221117
  4. LOSARTAN [Concomitant]
     Active Substance: LOSARTAN
     Dates: start: 20210630
  5. MOMETASONE [Concomitant]
     Active Substance: MOMETASONE
     Dates: start: 20221115
  6. NITROFURANTOIN [Concomitant]
     Active Substance: NITROFURANTOIN
     Dates: start: 20221024, end: 20221027
  7. ACETAMINOPHEN [Concomitant]
     Active Substance: ACETAMINOPHEN
     Dosage: FOUR TIMES A DAY
     Dates: start: 20200529
  8. CARBOMER [Concomitant]
     Active Substance: CARBOMER
     Dosage: LEFT EYE
     Dates: start: 20211022

REACTIONS (2)
  - Myalgia [Recovering/Resolving]
  - Pain [Recovering/Resolving]
